FAERS Safety Report 6205083-4 (Version None)
Quarter: 2009Q2

REPORT INFORMATION
  Report Type: 
  Country: None (occurrence: None)
  Receive Date: 20090526
  Receipt Date: 20090515
  Transmission Date: 20091009
  Serious: No
  Sender: FDA-Public Use
  Company Number: 2009005525

PATIENT
  Sex: Female

DRUGS (3)
  1. FENTORA [Suspect]
     Indication: NECK PAIN
     Dosage: BU
     Route: 002
  2. FENTANYL [Concomitant]
  3. PERCOCET [Concomitant]

REACTIONS (1)
  - CIRCUMSTANCE OR INFORMATION CAPABLE OF LEADING TO MEDICATION ERROR [None]
